FAERS Safety Report 22079870 (Version 1)
Quarter: 2023Q1

REPORT INFORMATION
  Report Type: Spontaneous
  Country: US (occurrence: None)
  Receive Date: 20230309
  Receipt Date: 20230309
  Transmission Date: 20230417
  Serious: No
  Sender: FDA-Public Use
  Company Number: None

PATIENT
  Age: 30 Year
  Sex: Female

DRUGS (1)
  1. SERTRALINE [Suspect]
     Active Substance: SERTRALINE HYDROCHLORIDE
     Indication: Major depression

REACTIONS (2)
  - Nausea [None]
  - Vomiting [None]

NARRATIVE: CASE EVENT DATE: 20230308
